FAERS Safety Report 15264118 (Version 1)
Quarter: 2018Q3

REPORT INFORMATION
  Report Type: Spontaneous
  Country: US (occurrence: US)
  Receive Date: 20180810
  Receipt Date: 20180810
  Transmission Date: 20181010
  Serious: No
  Sender: FDA-Public Use
  Company Number: US-ACCORD-068792

PATIENT
  Age: 71 Year
  Sex: Male
  Weight: 76.2 kg

DRUGS (2)
  1. ZETIA [Concomitant]
     Active Substance: EZETIMIBE
  2. ROSUVASTATIN ACCORD [Suspect]
     Active Substance: ROSUVASTATIN
     Indication: HYPERCHOLESTEROLAEMIA
     Dosage: STRENGTH: 40 MG
     Route: 048
     Dates: start: 201801

REACTIONS (2)
  - Product substitution issue [Unknown]
  - Drug ineffective [Unknown]
